FAERS Safety Report 4527346-0 (Version None)
Quarter: 2004Q4

REPORT INFORMATION
  Report Type: 
  Country: None (occurrence: None)
  Receive Date: 20041130
  Receipt Date: 20041006
  Transmission Date: 20050328
  Serious: Yes (Disabling)
  Sender: FDA-Public Use
  Company Number: FABR-10686

PATIENT
  Age: 53 Year
  Sex: Male
  Weight: 68.0396 kg

DRUGS (10)
  1. FABRAZYME [Suspect]
     Indication: FABRY'S DISEASE
     Dosage: 1MG/KG Q2WKS IV
     Route: 042
     Dates: start: 20040206
  2. BUSPIRONE [Concomitant]
  3. PHOSLO [Concomitant]
  4. ALLEGRA [Concomitant]
  5. LORAZEPAM [Concomitant]
  6. VITAMIN B COMPLEX CAP [Concomitant]
  7. VITAMIN C [Concomitant]
  8. COUMADIN [Concomitant]
  9. ACIPHEX [Concomitant]
  10. NEPHROVITE [Concomitant]

REACTIONS (1)
  - CEREBROVASCULAR ACCIDENT [None]
